FAERS Safety Report 18347943 (Version 1)
Quarter: 2020Q4

REPORT INFORMATION
  Report Type: Spontaneous
  Country: US (occurrence: US)
  Receive Date: 20201005
  Receipt Date: 20201005
  Transmission Date: 20210114
  Serious: No
  Sender: FDA-Public Use
  Company Number: None

PATIENT
  Age: 47 Year
  Sex: Female

DRUGS (1)
  1. RASUVO [Suspect]
     Active Substance: METHOTREXATE SODIUM
     Indication: RHEUMATOID ARTHRITIS
     Dosage: OTHER DOSE:25MG (0.5ML) ONCE WEEKLY ON THE SAME DAY EACH WEEK AS DIRECTED.?
     Route: 058
     Dates: start: 202008

REACTIONS (1)
  - Pneumonia [None]
